FAERS Safety Report 5508566-5 (Version None)
Quarter: 2007Q4

REPORT INFORMATION
  Report Type: 
  Country: None (occurrence: None)
  Receive Date: 20071105
  Receipt Date: 20071019
  Transmission Date: 20080405
  Serious: Yes (Hospitalization, Other)
  Sender: FDA-Public Use
  Company Number: 163516ISR

PATIENT
  Age: 69 Year
  Sex: Male

DRUGS (7)
  1. CISPLATIN [Suspect]
     Indication: NON-SMALL CELL LUNG CANCER
     Dosage: (144 MG, 1 IN 21 D), INTRAVENOUS
     Route: 042
     Dates: start: 20070108, end: 20070205
  2. PF-3512676 [Suspect]
     Indication: NON-SMALL CELL LUNG CANCER
     Dosage: (15.2 MG, ON DAY 8 AND 15 OF 21 DAYS CYCLE), SUBCUTANEOUS
     Route: 058
     Dates: start: 20070115, end: 20070122
  3. GEMCITABINE [Suspect]
     Indication: NON-SMALL CELL LUNG CANCER
     Dosage: 2400 MG (2400 MG, DAY 1 AND 8 OF 21 DAY CYCLE), INTRAVENOUS
     Route: 042
     Dates: start: 20070108, end: 20070205
  4. ACETYLSALICYLIC ACID SRT [Concomitant]
  5. ONDANSETRON [Concomitant]
  6. DEXAMETHASONE [Concomitant]
  7. MEGESTROL ACETATE [Concomitant]

REACTIONS (1)
  - TRANSIENT ISCHAEMIC ATTACK [None]
